FAERS Safety Report 8275251-9 (Version None)
Quarter: 2012Q2

REPORT INFORMATION
  Report Type: 
  Country: None (occurrence: None)
  Receive Date: 20120411
  Receipt Date: 20120328
  Transmission Date: 20120825
  Serious: No
  Sender: FDA-Public Use
  Company Number: US-BAYER-2012-031229

PATIENT
  Age: 21 Year
  Sex: Female
  Weight: 59 kg

DRUGS (2)
  1. ASPIRIN [Suspect]
     Indication: HEADACHE
     Dosage: 2 DF, ONCE
     Route: 048
     Dates: start: 20120328
  2. ALEVE (CAPLET) [Suspect]
     Dosage: UNK
     Route: 048

REACTIONS (4)
  - AURICULAR SWELLING [None]
  - DRUG HYPERSENSITIVITY [None]
  - LIP SWELLING [None]
  - SLEEP DISORDER [None]
